FAERS Safety Report 5943783-1 (Version None)
Quarter: 2008Q4

REPORT INFORMATION
  Report Type: 
  Country: None (occurrence: None)
  Receive Date: 20081106
  Receipt Date: 20081030
  Transmission Date: 20090506
  Serious: Yes (Other)
  Sender: FDA-Public Use
  Company Number: US-PFIZER INC-2008091603

PATIENT
  Sex: Male

DRUGS (2)
  1. CELEBREX [Suspect]
     Indication: PAIN MANAGEMENT
  2. BEXTRA [Suspect]
     Indication: PAIN MANAGEMENT

REACTIONS (1)
  - IMPAIRED HEALING [None]
